FAERS Safety Report 5063083-4 (Version None)
Quarter: 2006Q3

REPORT INFORMATION
  Report Type: 
  Country: None (occurrence: None)
  Receive Date: 20060727
  Receipt Date: 20060301
  Transmission Date: 20061208
  Serious: Yes (Hospitalization)
  Sender: FDA-Public Use
  Company Number: FR-BRISTOL-MYERS SQUIBB COMPANY-13302823

PATIENT
  Age: 31 Year
  Sex: Male
  Weight: 55 kg

DRUGS (6)
  1. SUSTIVA [Suspect]
     Indication: HIV INFECTION
     Route: 048
     Dates: start: 20060216
  2. TRUVADA [Suspect]
     Indication: HIV INFECTION
     Dates: start: 20060216
  3. RIFATER [Suspect]
     Indication: TUBERCULOSIS
     Dates: start: 20051218
  4. BACTRIM [Suspect]
     Indication: ANTIBIOTIC PROPHYLAXIS
     Dates: start: 20051129
  5. NEXIUM [Suspect]
     Indication: VOMITING
     Dates: start: 20060105
  6. MYAMBUTOL [Concomitant]
     Dates: end: 20060215

REACTIONS (2)
  - COLITIS [None]
  - IMMUNE RECONSTITUTION SYNDROME [None]
